FAERS Safety Report 8230216-8 (Version None)
Quarter: 2012Q1

REPORT INFORMATION
  Report Type: 
  Country: None (occurrence: None)
  Receive Date: 20120321
  Receipt Date: 20120321
  Transmission Date: 20120608
  Serious: No
  Sender: FDA-Public Use
  Company Number: None

PATIENT
  Sex: Male
  Weight: 77.3 kg

DRUGS (2)
  1. EVEROLIMUS (AFINITOR, RAD-001) [Suspect]
     Dosage: 10 MG
     Dates: end: 20120214
  2. SANDOSTATIN [Suspect]
     Dosage: 20 MG
     Dates: end: 20120208

REACTIONS (1)
  - HYPERTRIGLYCERIDAEMIA [None]
